FAERS Safety Report 7365425-3 (Version None)
Quarter: 2011Q1

REPORT INFORMATION
  Report Type: 
  Country: None (occurrence: None)
  Receive Date: 20110310
  Receipt Date: 20101221
  Transmission Date: 20110831
  Serious: Yes (Hospitalization)
  Sender: FDA-Public Use
  Company Number: JP-20100035

PATIENT
  Age: 67 Year
  Sex: Female

DRUGS (2)
  1. (LIPIODOL ULTRA FLUIDE) (ETHIODIZED OIL) [Suspect]
     Indication: THERAPEUTIC EMBOLISATION
     Dosage: 6 ML (6 ML, 1 IN 1 D)  INTRA-ARTERIAL
     Route: 013
  2. CISPLATIN [Suspect]
     Indication: THERAPEUTIC EMBOLISATION
     Dosage: 100 MG (100 MG, 1 IN 1 D)  INTRA-ARTERIAL
     Route: 013

REACTIONS (8)
  - BLOOD LACTATE DEHYDROGENASE INCREASED [None]
  - GAMMA-GLUTAMYLTRANSFERASE INCREASED [None]
  - ALANINE AMINOTRANSFERASE INCREASED [None]
  - ABDOMINAL PAIN [None]
  - HEPATIC FUNCTION ABNORMAL [None]
  - THROMBOCYTOPENIA [None]
  - BLOOD ALKALINE PHOSPHATASE INCREASED [None]
  - ASPARTATE AMINOTRANSFERASE INCREASED [None]
